FAERS Safety Report 4806263-2 (Version None)
Quarter: 2005Q4

REPORT INFORMATION
  Report Type: 
  Country: None (occurrence: None)
  Receive Date: 20051021
  Receipt Date: 20050722
  Transmission Date: 20060501
  Serious: Yes (Other)
  Sender: FDA-Public Use
  Company Number: 2005GB01521

PATIENT
  Sex: Male

DRUGS (1)
  1. SEROQUEL [Suspect]
     Route: 048

REACTIONS (9)
  - BLOODY DISCHARGE [None]
  - CHEST PAIN [None]
  - DRUG TOXICITY [None]
  - HYPERHIDROSIS [None]
  - LUNG INFECTION [None]
  - MALAISE [None]
  - NAUSEA [None]
  - RECTAL DISCHARGE [None]
  - VERTIGO [None]
